FAERS Safety Report 4577633-5 (Version None)
Quarter: 2005Q1

REPORT INFORMATION
  Report Type: 
  Country: None (occurrence: None)
  Receive Date: 20050208
  Receipt Date: 20050121
  Transmission Date: 20050727
  Serious: Yes (Hospitalization)
  Sender: FDA-Public Use
  Company Number: DSA_25670_2005

PATIENT
  Age: 74 Year
  Sex: Female

DRUGS (2)
  1. DILTIAZEM [Suspect]
     Indication: ILL-DEFINED DISORDER
     Dosage: DF
  2. ARICEPT [Suspect]
     Indication: ILL-DEFINED DISORDER
     Dosage: DF

REACTIONS (2)
  - CARDIAC DISORDER [None]
  - LOSS OF CONSCIOUSNESS [None]
